FAERS Safety Report 7061227-6 (Version None)
Quarter: 2010Q4

REPORT INFORMATION
  Report Type: 
  Country: None (occurrence: None)
  Receive Date: 20101026
  Receipt Date: 20101015
  Transmission Date: 20110411
  Serious: No
  Sender: FDA-Public Use
  Company Number: US-PFIZER INC-2010132083

PATIENT
  Sex: Female
  Weight: 43.537 kg

DRUGS (3)
  1. DETROL LA [Suspect]
     Indication: POLLAKIURIA
     Dosage: 2 MG, 1X/DAY
     Route: 048
     Dates: start: 20100901, end: 20101001
  2. DETROL LA [Suspect]
     Dosage: 2 MG, 2X/DAY
     Route: 048
     Dates: start: 20101001
  3. WARFARIN [Concomitant]
     Dosage: UNK

REACTIONS (1)
  - DRUG INEFFECTIVE [None]
